FAERS Safety Report 22108395 (Version 1)
Quarter: 2023Q1

REPORT INFORMATION
  Report Type: Spontaneous
  Country: GB (occurrence: GB)
  Receive Date: 20230317
  Receipt Date: 20230317
  Transmission Date: 20230418
  Serious: Yes (Hospitalization, Disabling, Other)
  Sender: FDA-Public Use
  Company Number: GB-MHRA-MIDB-e2f24ed8-2b8f-4e08-9a98-86de02b3834e

PATIENT
  Age: 17 Year
  Sex: Female

DRUGS (5)
  1. METRONIDAZOLE [Suspect]
     Active Substance: METRONIDAZOLE
     Indication: Pelvic inflammatory disease
     Dosage: 400 MILLIGRAM, TWO TIMES A DAY (14 DAYS)
     Route: 048
     Dates: start: 20230111, end: 20230117
  2. OFLOXACIN [Suspect]
     Active Substance: OFLOXACIN
     Indication: Pelvic inflammatory disease
     Dosage: 400 MILLIGRAM, TWO TIMES A DAY (14 DY
     Route: 048
     Dates: start: 20230111, end: 20230117
  3. DULOXETINE [Concomitant]
     Active Substance: DULOXETINE
     Indication: Depression
     Dosage: 30 MILLIGRAM, ONCE A DAY
     Route: 048
     Dates: start: 20230110, end: 20230112
  4. FLUCONAZOLE [Concomitant]
     Active Substance: FLUCONAZOLE
     Indication: Fungal skin infection
     Dosage: 50 MILLIGRAM, ONCE A DAY
     Route: 048
     Dates: start: 20230110, end: 20230117
  5. ETHINYL ESTRADIOL\GESTODENE [Concomitant]
     Active Substance: ETHINYL ESTRADIOL\GESTODENE
     Indication: Contraception
     Dosage: UNK
     Route: 065

REACTIONS (5)
  - Confusional state [Recovering/Resolving]
  - Headache [Recovered/Resolved]
  - Photophobia [Recovered/Resolved]
  - Gait inability [Unknown]
  - Vomiting [Unknown]

NARRATIVE: CASE EVENT DATE: 20230111
